APPROVED DRUG PRODUCT: PROMETHAZINE HYDROCHLORIDE AND PHENYLEPHRINE HYDROCHLORIDE
Active Ingredient: PHENYLEPHRINE HYDROCHLORIDE; PROMETHAZINE HYDROCHLORIDE
Strength: 5MG/5ML;6.25MG/5ML
Dosage Form/Route: SYRUP;ORAL
Application: A040902 | Product #001 | TE Code: AA
Applicant: AMNEAL PHARMACEUTICALS
Approved: Aug 25, 2009 | RLD: No | RS: No | Type: RX